FAERS Safety Report 20675468 (Version 1)
Quarter: 2022Q2

REPORT INFORMATION
  Report Type: Spontaneous
  Country: ES (occurrence: ES)
  Receive Date: 20220405
  Receipt Date: 20220405
  Transmission Date: 20220721
  Serious: Yes (Other)
  Sender: FDA-Public Use
  Company Number: ES-PFIZER INC-202200497796

PATIENT
  Age: 38 Year
  Sex: Male

DRUGS (2)
  1. MEROPENEM [Suspect]
     Active Substance: MEROPENEM
     Indication: Evidence based treatment
     Dosage: UNK
  2. MEROPENEM [Suspect]
     Active Substance: MEROPENEM
     Indication: Escherichia infection

REACTIONS (11)
  - Condition aggravated [Unknown]
  - Pyrexia [Unknown]
  - Haemodynamic instability [Unknown]
  - Renal failure [Unknown]
  - Dependence on oxygen therapy [Unknown]
  - Respiratory depression [Unknown]
  - Erythema induratum [Unknown]
  - Procalcitonin increased [Unknown]
  - Abdominal discomfort [Unknown]
  - Waist circumference increased [Unknown]
  - Psychomotor hyperactivity [Unknown]
